FAERS Safety Report 12456410 (Version 1)
Quarter: 2016Q2

REPORT INFORMATION
  Report Type: Spontaneous
  Country: CY (occurrence: CY)
  Receive Date: 20160610
  Receipt Date: 20160610
  Transmission Date: 20160815
  Serious: Yes (Other)
  Sender: FDA-Public Use
  Company Number: CY-AMGEN-CYPSP2016072640

PATIENT
  Age: 73 Year
  Sex: Female

DRUGS (1)
  1. PROLIA [Suspect]
     Active Substance: DENOSUMAB
     Indication: PRODUCT USED FOR UNKNOWN INDICATION
     Dosage: UNK
     Route: 065
     Dates: start: 2013

REACTIONS (2)
  - Hip fracture [Unknown]
  - Parathyroid disorder [Unknown]

NARRATIVE: CASE EVENT DATE: 201512
